FAERS Safety Report 11594352 (Version 1)
Quarter: 2015Q4

REPORT INFORMATION
  Report Type: Report from Study
  Country: US (occurrence: US)
  Receive Date: 20151005
  Receipt Date: 20151005
  Transmission Date: 20160304
  Serious: Yes (Hospitalization, Other)
  Sender: FDA-Public Use
  Company Number: US-GLAXOSMITHKLINE-US2015GSK139620

PATIENT
  Age: 17 Year
  Sex: Male
  Weight: 74.2 kg

DRUGS (4)
  1. TOPOTECAN HYDROCHLORIDE. [Suspect]
     Active Substance: TOPOTECAN HYDROCHLORIDE
     Indication: EWING^S SARCOMA METASTATIC
     Dosage: 0.75 MG, CYC
     Dates: start: 20150817
  2. CRIZOTINIB [Suspect]
     Active Substance: CRIZOTINIB
     Indication: EWING^S SARCOMA METASTATIC
     Dosage: 550 MG, CYC
     Route: 048
     Dates: start: 20150817, end: 20150819
  3. CYCLOPHOSPHAMIDE. [Suspect]
     Active Substance: CYCLOPHOSPHAMIDE
     Indication: EWING^S SARCOMA METASTATIC
     Dosage: 250 MG/M2, CYC
     Dates: start: 20150817
  4. CRIZOTINIB [Suspect]
     Active Substance: CRIZOTINIB
     Dosage: 280 MG/M2, UNK
     Route: 048
     Dates: start: 20150901, end: 20150904

REACTIONS (2)
  - Hypotension [Recovered/Resolved]
  - Lung infection [Recovered/Resolved]

NARRATIVE: CASE EVENT DATE: 20150819
